FAERS Safety Report 5235158-8 (Version None)
Quarter: 2007Q1

REPORT INFORMATION
  Report Type: 
  Country: None (occurrence: None)
  Receive Date: 20070207
  Receipt Date: 20070122
  Transmission Date: 20070707
  Serious: Yes (Life-Threatening)
  Sender: FDA-Public Use
  Company Number: GXKR2007FR01310

PATIENT
  Age: 86 Year
  Sex: Male

DRUGS (11)
  1. DEXTROPROPOXYPHENE+PARACETAMOL (NGX)  (DEXTROPROPOXYPHENE, PARACETAMOL [Suspect]
     Dosage: 30 MG QD ORAL
     Route: 048
     Dates: start: 20061115
  2. MIANSERIN SANDOZ (NGX) (MIANSERIN) UNKNOWN [Suspect]
     Dosage: 30 MG QD ORAL
     Route: 048
     Dates: end: 20061113
  3. PARACETAMOL (NGX) (PARACETAMOL) UNKNOWN [Suspect]
     Dosage: 500 MG QD ORAL
     Route: 048
     Dates: start: 20061113
  4. KARDEGIC (ACETYLSALICYLATE LYSINE) [Suspect]
     Dosage: 75 MG QD ORAL
     Route: 048
     Dates: start: 20061113
  5. PREVISCAN (FLUINDIONE) [Suspect]
     Dosage: 15 MG QD ORAL
     Route: 048
     Dates: end: 20061120
  6. EFFEXOR [Concomitant]
  7. MOVICOL (MACROGOL, POTASSIUM CHLORIDE, SODIUM BICARBONATE, SODIUM CHLO [Concomitant]
  8. LANTUS [Concomitant]
  9. ACTRAPID HUMAN (INSULIN HUMAN) [Concomitant]
  10. COVERSYL/FRA/ (PERINDOPRIL) [Concomitant]
  11. LEXOMIL (BROMAZEPAM) [Concomitant]

REACTIONS (2)
  - COAGULOPATHY [None]
  - INTERNATIONAL NORMALISED RATIO INCREASED [None]
